FAERS Safety Report 4857557-6 (Version None)
Quarter: 2005Q4

REPORT INFORMATION
  Report Type: 
  Country: None (occurrence: None)
  Receive Date: 20051219
  Receipt Date: 20050518
  Transmission Date: 20060501
  Serious: No
  Sender: FDA-Public Use
  Company Number: US-GLAXOSMITHKLINE-A0559091A

PATIENT
  Age: 38 Year
  Sex: Female

DRUGS (2)
  1. NICODERM CQ [Suspect]
     Dates: start: 20050510
  2. ROBAXIN [Concomitant]

REACTIONS (2)
  - MOUTH ULCERATION [None]
  - ORAL MUCOSAL BLISTERING [None]
